FAERS Safety Report 7809780-6 (Version None)
Quarter: 2011Q4

REPORT INFORMATION
  Report Type: 
  Country: None (occurrence: None)
  Receive Date: 20111012
  Receipt Date: 20111003
  Transmission Date: 20120403
  Serious: Yes (Hospitalization, Other)
  Sender: FDA-Public Use
  Company Number: GB-JNJFOC-20111004348

PATIENT

DRUGS (1)
  1. XARELTO [Suspect]
     Indication: ELECTIVE SURGERY
     Route: 048

REACTIONS (1)
  - RENAL FAILURE [None]
